FAERS Safety Report 8163531-7 (Version None)
Quarter: 2012Q1

REPORT INFORMATION
  Report Type: 
  Country: None (occurrence: None)
  Receive Date: 20120224
  Receipt Date: 20120216
  Transmission Date: 20120608
  Serious: Yes (Other)
  Sender: FDA-Public Use
  Company Number: AR-JNJFOC-20120111925

PATIENT
  Sex: Male
  Weight: 82.5 kg

DRUGS (14)
  1. PREDNISONE [Concomitant]
     Route: 048
     Dates: start: 20060325
  2. LEVOTHYROXINE SODIUM [Concomitant]
     Dates: start: 19980101
  3. RANITIDINE [Concomitant]
     Route: 048
     Dates: start: 20040101
  4. IBANDRONATE SODIUM [Concomitant]
     Route: 048
     Dates: start: 20110713
  5. GOLIMUMAB [Suspect]
     Indication: RHEUMATOID ARTHRITIS
     Route: 058
     Dates: start: 20061206
  6. VITAMIN D [Concomitant]
     Route: 048
     Dates: start: 20090128
  7. DICLOFENAC SODIUM [Concomitant]
     Route: 048
     Dates: start: 20040401
  8. TAMSULOSIN HCL [Concomitant]
     Route: 048
     Dates: start: 20080205
  9. GOLIMUMAB [Suspect]
     Route: 058
     Dates: start: 20111005
  10. METHOTREXATE [Suspect]
     Indication: RHEUMATOID ARTHRITIS
     Route: 048
     Dates: start: 20071211, end: 20080520
  11. METHOTREXATE [Concomitant]
     Route: 048
     Dates: start: 20080521
  12. ERGOCALCIFEROL [Concomitant]
     Route: 048
     Dates: start: 20091230
  13. FOLIC ACID [Concomitant]
     Route: 048
     Dates: start: 20040203
  14. FLUCONAZOLE [Concomitant]
     Route: 048
     Dates: start: 20091101

REACTIONS (1)
  - PROSTATE CANCER [None]
